FAERS Safety Report 21072605 (Version 1)
Quarter: 2022Q3

REPORT INFORMATION
  Report Type: Spontaneous
  Country: BR (occurrence: BR)
  Receive Date: 20220712
  Receipt Date: 20220712
  Transmission Date: 20221027
  Serious: Yes (Other)
  Sender: FDA-Public Use
  Company Number: BR-SA-2020SA025255

PATIENT
  Sex: Male

DRUGS (1)
  1. CARDIZEM [Suspect]
     Active Substance: DILTIAZEM HYDROCHLORIDE
     Indication: Infarction
     Route: 065
     Dates: start: 2018

REACTIONS (3)
  - Asphyxia [Unknown]
  - Chest pain [Unknown]
  - Discomfort [Unknown]
